FAERS Safety Report 9869702 (Version 1)
Quarter: 2014Q1

REPORT INFORMATION
  Report Type: Spontaneous
  Country: US (occurrence: None)
  Receive Date: 20140203
  Receipt Date: 20140203
  Transmission Date: 20141002
  Serious: Yes (Other)
  Sender: FDA-Public Use
  Company Number: None

PATIENT
  Age: 53 Year
  Sex: Female

DRUGS (2)
  1. AFINITOR 10MG NOVARTIS [Suspect]
     Indication: BREAST CANCER
     Route: 048
     Dates: start: 20130626
  2. EXEMESTANE [Suspect]
     Indication: BREAST CANCER
     Route: 048
     Dates: start: 20130626

REACTIONS (1)
  - Metastases to liver [None]
